FAERS Safety Report 22843267 (Version 6)
Quarter: 2024Q1

REPORT INFORMATION
  Report Type: Spontaneous
  Country: US (occurrence: US)
  Receive Date: 20230821
  Receipt Date: 20240122
  Transmission Date: 20240410
  Serious: No
  Sender: FDA-Public Use
  Company Number: US-PFIZER INC-202300276212

PATIENT
  Age: 14 Year
  Sex: Male
  Weight: 68.04 kg

DRUGS (1)
  1. GENOTROPIN [Suspect]
     Active Substance: SOMATROPIN
     Indication: Growth disorder
     Dosage: 3.4 MG, ONE TIME A DAY, 6 DAYS A WEEK

REACTIONS (2)
  - Drug dose omission by device [Unknown]
  - Device breakage [Unknown]
